FAERS Safety Report 23395876 (Version 2)
Quarter: 2024Q3

REPORT INFORMATION
  Report Type: Spontaneous
  Country: US (occurrence: US)
  Receive Date: 20240112
  Receipt Date: 20240709
  Transmission Date: 20241017
  Serious: No
  Sender: NOVARTIS
  Company Number: US-002147023-NVSC2024US007055

PATIENT
  Age: 48 Year
  Sex: Male

DRUGS (1)
  1. PROMACTA [Suspect]
     Active Substance: ELTROMBOPAG OLAMINE
     Indication: Immune thrombocytopenia
     Dosage: 50 MG, QD
     Route: 048
     Dates: start: 202308

REACTIONS (4)
  - Contusion [Unknown]
  - Skin discolouration [Unknown]
  - Platelet count decreased [Recovering/Resolving]
  - Product dose omission issue [Unknown]

NARRATIVE: CASE EVENT DATE: 20231101
